FAERS Safety Report 24556993 (Version 2)
Quarter: 2024Q4

REPORT INFORMATION
  Report Type: Spontaneous
  Country: SE (occurrence: SE)
  Receive Date: 20241028
  Receipt Date: 20241111
  Transmission Date: 20250115
  Serious: Yes (Life-Threatening, Hospitalization, Disabling, Other)
  Sender: PFIZER
  Company Number: None

PATIENT
  Sex: Female
  Weight: 80 kg

DRUGS (2)
  1. DEPO-PROVERA [Suspect]
     Active Substance: MEDROXYPROGESTERONE ACETATE
     Indication: Endometriosis
     Dosage: 150 MG, CYCLIC (EVERY 14TH DAY). VARIABLE. PERIODICALLY AS OFTEN AS EVERY OTHER WEEK.
     Route: 030
     Dates: start: 2005, end: 20221222
  2. PROVERA [Concomitant]
     Active Substance: MEDROXYPROGESTERONE ACETATE
     Dosage: HAS BEEN VARIABLE
     Route: 048
     Dates: start: 2005, end: 2022

REACTIONS (5)
  - Meningioma [Recovered/Resolved with Sequelae]
  - Burnout syndrome [Unknown]
  - Bladder pain [Unknown]
  - Urinary retention [Unknown]
  - Off label use [Unknown]

NARRATIVE: CASE EVENT DATE: 20050101
